FAERS Safety Report 6828806-X (Version None)
Quarter: 2010Q3

REPORT INFORMATION
  Report Type: 
  Country: None (occurrence: None)
  Receive Date: 20100709
  Receipt Date: 20070220
  Transmission Date: 20110219
  Serious: No
  Sender: FDA-Public Use
  Company Number: US-PFIZER INC-2007005452

PATIENT
  Sex: Female
  Weight: 61.23 kg

DRUGS (8)
  1. CHANTIX [Suspect]
     Indication: SMOKING CESSATION THERAPY
     Dates: start: 20070118
  2. RESTORIL [Concomitant]
     Indication: SLEEP DISORDER
  3. COMBIVENT [Concomitant]
     Indication: CHRONIC OBSTRUCTIVE PULMONARY DISEASE
  4. SPIRIVA [Concomitant]
     Indication: CHRONIC OBSTRUCTIVE PULMONARY DISEASE
  5. ADVAIR DISKUS 100/50 [Concomitant]
     Indication: CHRONIC OBSTRUCTIVE PULMONARY DISEASE
  6. ANALGESICS [Concomitant]
     Indication: BACK DISORDER
  7. ELAVIL [Concomitant]
     Indication: GASTRIC DISORDER
  8. TYLENOL PM [Concomitant]

REACTIONS (6)
  - ABNORMAL DREAMS [None]
  - CONSTIPATION [None]
  - DYSGEUSIA [None]
  - HEART RATE ABNORMAL [None]
  - INITIAL INSOMNIA [None]
  - PALPITATIONS [None]
